FAERS Safety Report 10883178 (Version 1)
Quarter: 2015Q1

REPORT INFORMATION
  Report Type: Spontaneous
  Country: FR (occurrence: FR)
  Receive Date: 20150303
  Receipt Date: 20150303
  Transmission Date: 20150721
  Serious: Yes (Hospitalization)
  Sender: FDA-Public Use
  Company Number: FR-SA-2015SA023908

PATIENT
  Age: 69 Year
  Sex: Female

DRUGS (7)
  1. LASILIX [Suspect]
     Active Substance: FUROSEMIDE
     Route: 048
  2. DIGOXINE NATIVELLE [Interacting]
     Active Substance: DIGOXIN
     Route: 048
     Dates: end: 201501
  3. TAHOR [Concomitant]
     Active Substance: ATORVASTATIN CALCIUM
     Route: 048
  4. GLUCOPHAGE [Concomitant]
     Active Substance: METFORMIN HYDROCHLORIDE
     Route: 048
  5. INEXIUM [Concomitant]
     Active Substance: ESOMEPRAZOLE
     Route: 048
  6. DIFFU K [Concomitant]
     Active Substance: POTASSIUM CHLORIDE
     Route: 048
  7. PREVISCAN [Concomitant]
     Active Substance: FLUINDIONE
     Dosage: STRENGTH: 20 MG
     Route: 048

REACTIONS (4)
  - Malaise [Recovered/Resolved]
  - Vomiting [Recovered/Resolved]
  - Drug interaction [Unknown]
  - Cardioactive drug level increased [Recovered/Resolved]

NARRATIVE: CASE EVENT DATE: 20150123
